FAERS Safety Report 9812964 (Version 1)
Quarter: 2014Q1

REPORT INFORMATION
  Report Type: Spontaneous
  Country: CZ (occurrence: CZ)
  Receive Date: 20140113
  Receipt Date: 20140113
  Transmission Date: 20141002
  Serious: Yes (Hospitalization, Other)
  Sender: FDA-Public Use
  Company Number: CZ-PFIZER INC-2014004142

PATIENT
  Age: 42 Year
  Sex: Female
  Weight: 76 kg

DRUGS (2)
  1. CLINDAMYCIN PHOSPHATE [Suspect]
     Indication: ANTIBIOTIC THERAPY
     Dosage: 600 MG, 4X/DAY
     Route: 042
  2. GENTAMICIN [Suspect]
     Indication: ANTIBIOTIC THERAPY
     Dosage: 240 MG, SINGLE
     Route: 042

REACTIONS (2)
  - Post procedural infection [Unknown]
  - Hypotension [Unknown]
